FAERS Safety Report 11061303 (Version 1)
Quarter: 2015Q2

REPORT INFORMATION
  Report Type: Spontaneous
  Country: US (occurrence: None)
  Receive Date: 20150423
  Receipt Date: 20150423
  Transmission Date: 20150821
  Serious: No
  Sender: FDA-Public Use
  Company Number: None

PATIENT
  Age: 62 Year
  Sex: Female
  Weight: 72.58 kg

DRUGS (6)
  1. TOPROL XL [Concomitant]
     Active Substance: METOPROLOL SUCCINATE
  2. TUMS [Concomitant]
     Active Substance: CALCIUM CARBONATE
  3. ALTACE [Concomitant]
     Active Substance: RAMIPRIL
  4. ZANTAC [Concomitant]
     Active Substance: RANITIDINE HYDROCHLORIDE
  5. ATORVASTATIN [Suspect]
     Active Substance: ATORVASTATIN
     Indication: MYOCARDIAL INFARCTION
     Dates: start: 20141003, end: 20150324
  6. NIACIN. [Suspect]
     Active Substance: NIACIN
     Indication: MYOCARDIAL INFARCTION
     Dates: start: 20141003, end: 20150324

REACTIONS (2)
  - Product substitution issue [None]
  - Hepatic enzyme abnormal [None]

NARRATIVE: CASE EVENT DATE: 20150324
